FAERS Safety Report 6934220-9 (Version None)
Quarter: 2010Q3

REPORT INFORMATION
  Report Type: 
  Country: None (occurrence: None)
  Receive Date: 20100820
  Receipt Date: 20100816
  Transmission Date: 20110219
  Serious: Yes (Other)
  Sender: FDA-Public Use
  Company Number: US-ELI_LILLY_AND_COMPANY-US201006004019

PATIENT
  Sex: Female

DRUGS (7)
  1. HUMALOG [Suspect]
     Indication: DIABETES MELLITUS
     Dosage: 5 U, AS NEEDED
     Dates: start: 20100611
  2. HUMALOG [Suspect]
     Dosage: 5 U, AS NEEDED
     Dates: start: 20100611
  3. HUMALOG [Suspect]
     Dosage: 5 U, 3/D
     Dates: start: 20100816
  4. HUMALOG [Suspect]
     Dosage: 7 U, 3/D
     Dates: start: 20100816
  5. METFORMIN [Concomitant]
     Dates: end: 20100611
  6. LEVEMIR [Concomitant]
     Dosage: 40 U, EACH MORNING
  7. LEVEMIR [Concomitant]
     Dosage: 45 U, EACH EVENING

REACTIONS (7)
  - ANXIETY [None]
  - BLOOD GLUCOSE INCREASED [None]
  - GLYCOSYLATED HAEMOGLOBIN INCREASED [None]
  - KETOACIDOSIS [None]
  - STRESS [None]
  - THERAPEUTIC RESPONSE DELAYED [None]
  - WEIGHT DECREASED [None]
